FAERS Safety Report 23645205 (Version 1)
Quarter: 2024Q1

REPORT INFORMATION
  Report Type: Report from Study
  Country: US (occurrence: US)
  Receive Date: 20240318
  Receipt Date: 20240318
  Transmission Date: 20240409
  Serious: No
  Sender: FDA-Public Use
  Company Number: US-ESPERIONTHERAPEUTICS-2023USA00321

PATIENT
  Sex: Female

DRUGS (1)
  1. BEMPEDOIC ACID\EZETIMIBE [Suspect]
     Active Substance: BEMPEDOIC ACID\EZETIMIBE
     Indication: Blood cholesterol abnormal
     Dosage: 1 DOSAGE FORM (180/10MG)
     Route: 048
     Dates: end: 20230329

REACTIONS (1)
  - Urinary tract infection [Unknown]
